FAERS Safety Report 7220492-2 (Version None)
Quarter: 2011Q1

REPORT INFORMATION
  Report Type: 
  Country: None (occurrence: None)
  Receive Date: 20110111
  Receipt Date: 20110104
  Transmission Date: 20110831
  Serious: Yes (Hospitalization)
  Sender: FDA-Public Use
  Company Number: US-US-EMD SERONO, INC.-7034515

PATIENT
  Sex: Female
  Weight: 122 kg

DRUGS (5)
  1. REBIF [Suspect]
     Indication: MULTIPLE SCLEROSIS
     Route: 058
     Dates: start: 20101104
  2. NUVIGIL [Concomitant]
  3. MULTI-VITAMIN [Concomitant]
  4. SYNTHROID [Concomitant]
  5. FLONASE [Concomitant]

REACTIONS (2)
  - OPTIC NEURITIS [None]
  - THROMBOPHLEBITIS SUPERFICIAL [None]
